FAERS Safety Report 17190643 (Version 1)
Quarter: 2019Q4

REPORT INFORMATION
  Report Type: Report from Study
  Country: None (occurrence: CO)
  Receive Date: 20191223
  Receipt Date: 20191223
  Transmission Date: 20200122
  Serious: Yes (Hospitalization)
  Sender: FDA-Public Use
  Company Number: CO-ABBVIE-17K-036-3081820-00

PATIENT
  Age: 62 Year
  Sex: Male
  Weight: 58 kg

DRUGS (1)
  1. IMBRUVICA [Suspect]
     Active Substance: IBRUTINIB
     Indication: MANTLE CELL LYMPHOMA
     Route: 048
     Dates: start: 20170515, end: 20170628

REACTIONS (8)
  - Pelvic pain [Not Recovered/Not Resolved]
  - Hyperhidrosis [Not Recovered/Not Resolved]
  - Infection [Unknown]
  - Hypoaesthesia [Not Recovered/Not Resolved]
  - Death [Fatal]
  - Metastasis [Unknown]
  - Somnolence [Unknown]
  - Pallor [Unknown]

NARRATIVE: CASE EVENT DATE: 20170524
